FAERS Safety Report 10083354 (Version 1)
Quarter: 2014Q2

REPORT INFORMATION
  Report Type: Spontaneous
  Country: US (occurrence: None)
  Receive Date: 20140415
  Receipt Date: 20140415
  Transmission Date: 20141212
  Serious: Yes (Other)
  Sender: FDA-Public Use
  Company Number: None

PATIENT
  Age: 33 Year
  Sex: Female
  Weight: 48.08 kg

DRUGS (1)
  1. METHYPREDNISOLONE 4MG MEDRO PACK [Suspect]
     Indication: HYPERSENSITIVITY
     Dates: start: 20140221, end: 20140224

REACTIONS (2)
  - Muscle contractions involuntary [None]
  - Drug effect decreased [None]
